FAERS Safety Report 9304046 (Version 1)
Quarter: 2013Q2

REPORT INFORMATION
  Report Type: Report from Study
  Country: US (occurrence: US)
  Receive Date: 20130522
  Receipt Date: 20130522
  Transmission Date: 20140414
  Serious: Yes (Other)
  Sender: FDA-Public Use
  Company Number: US-MYLANLABS-2013S1003913

PATIENT
  Age: 15 Year
  Sex: Male
  Weight: 57 kg

DRUGS (3)
  1. AMNESTEEM CAPSULES [Suspect]
     Indication: ACNE
     Route: 048
     Dates: start: 201212, end: 201302
  2. AMNESTEEM CAPSULES [Suspect]
     Indication: ACNE
     Route: 048
     Dates: start: 201212, end: 201302
  3. CITALOPRAM [Concomitant]

REACTIONS (2)
  - Suicidal ideation [Recovered/Resolved]
  - Treatment noncompliance [Recovered/Resolved]
